FAERS Safety Report 11021730 (Version 1)
Quarter: 2015Q2

REPORT INFORMATION
  Report Type: Spontaneous
  Country: US (occurrence: US)
  Receive Date: 20150413
  Receipt Date: 20150413
  Transmission Date: 20150821
  Serious: No
  Sender: FDA-Public Use
  Company Number: US-009507513-1504USA003197

PATIENT

DRUGS (4)
  1. AVASTIN (SIMVASTATIN) [Concomitant]
     Active Substance: SIMVASTATIN
     Dosage: UNK
  2. TEMODAR [Suspect]
     Active Substance: TEMOZOLOMIDE
     Route: 048
  3. ACCUTANE [Concomitant]
     Active Substance: ISOTRETINOIN
     Indication: ACNE
     Dosage: UNK
  4. LOMUSTINE. [Concomitant]
     Active Substance: LOMUSTINE
     Dosage: SINGLE DOSE, ONCE

REACTIONS (1)
  - No therapeutic response [Unknown]
